FAERS Safety Report 19737946 (Version 1)
Quarter: 2021Q3

REPORT INFORMATION
  Report Type: Other
  Country: PT (occurrence: PT)
  Receive Date: 20210823
  Receipt Date: 20210823
  Transmission Date: 20211014
  Serious: Yes (Other)
  Sender: FDA-Public Use
  Company Number: PT-ROCHE-2892661

PATIENT

DRUGS (11)
  1. DIAZEPAM. [Suspect]
     Active Substance: DIAZEPAM
     Indication: ANXIETY DISORDER
     Route: 065
  2. CLONAZEPAM. [Suspect]
     Active Substance: CLONAZEPAM
     Indication: ANXIETY DISORDER
     Route: 065
  3. LORAZEPAM. [Suspect]
     Active Substance: LORAZEPAM
     Indication: ANXIETY DISORDER
     Route: 065
  4. BROMAZEPAM [Suspect]
     Active Substance: BROMAZEPAM
     Indication: ANXIETY DISORDER
     Route: 065
  5. FLURAZEPAM [Suspect]
     Active Substance: FLURAZEPAM HYDROCHLORIDE
     Indication: ANXIETY DISORDER
     Route: 065
  6. OXAZEPAM. [Suspect]
     Active Substance: OXAZEPAM
     Indication: ANXIETY DISORDER
     Route: 065
  7. ETHYL LOFLAZEPATE [Suspect]
     Active Substance: ETHYL LOFLAZEPATE
     Indication: ANXIETY DISORDER
     Route: 065
  8. MIDAZOLAM. [Suspect]
     Active Substance: MIDAZOLAM
     Indication: ANXIETY DISORDER
     Route: 065
  9. DIPOTASSIUM CLORAZEPATE [Suspect]
     Active Substance: CLORAZEPATE DIPOTASSIUM
     Indication: ANXIETY DISORDER
     Route: 065
  10. CLOXAZOLAM [Suspect]
     Active Substance: CLOXAZOLAM
     Indication: ANXIETY DISORDER
     Route: 065
  11. ALPRAZOLAM. [Suspect]
     Active Substance: ALPRAZOLAM
     Indication: ANXIETY DISORDER
     Route: 065

REACTIONS (11)
  - Suicidal ideation [Unknown]
  - HIV infection [Unknown]
  - Drug abuse [Unknown]
  - Irritability [Unknown]
  - Overdose [Unknown]
  - Hepatitis C [Unknown]
  - Anger [Unknown]
  - Depressive symptom [Unknown]
  - Depression [Unknown]
  - Hepatitis B [Unknown]
  - Anxiety [Unknown]
